FAERS Safety Report 5089368-3 (Version None)
Quarter: 2006Q3

REPORT INFORMATION
  Report Type: 
  Country: None (occurrence: None)
  Receive Date: 20060822
  Receipt Date: 20060808
  Transmission Date: 20061208
  Serious: Yes (Death, Other)
  Sender: FDA-Public Use
  Company Number: CAN-2006-0000350

PATIENT
  Age: 27 Year
  Sex: Male

DRUGS (1)
  1. HYDROMORPHONE HYDROCHLORIDE [Suspect]

REACTIONS (6)
  - FOAMING AT MOUTH [None]
  - INCREASED BRONCHIAL SECRETION [None]
  - PNEUMONIA ASPIRATION [None]
  - PULMONARY CONGESTION [None]
  - PULMONARY HAEMORRHAGE [None]
  - PULMONARY OEDEMA [None]
